FAERS Safety Report 6038564-7 (Version None)
Quarter: 2009Q1

REPORT INFORMATION
  Report Type: 
  Country: None (occurrence: None)
  Receive Date: 20090115
  Receipt Date: 20090107
  Transmission Date: 20090719
  Serious: Yes (Congenital Anomaly)
  Sender: FDA-Public Use
  Company Number: A0680979A

PATIENT
  Sex: Male

DRUGS (4)
  1. PAXIL [Suspect]
     Indication: DEPRESSION
     Dates: start: 20030101, end: 20050101
  2. PAROXETINE HCL [Suspect]
     Indication: DEPRESSION
     Dates: start: 20030101, end: 20050101
  3. VITAMIN TAB [Concomitant]
  4. INSULIN [Concomitant]
     Indication: GESTATIONAL DIABETES
     Dates: start: 20040101, end: 20050101

REACTIONS (6)
  - CONGENITAL ANOMALY [None]
  - CONVULSION [None]
  - DRUG EXPOSURE DURING PREGNANCY [None]
  - PERIVENTRICULAR LEUKOMALACIA [None]
  - PLAGIOCEPHALY [None]
  - TORTICOLLIS [None]
